FAERS Safety Report 10891129 (Version 13)
Quarter: 2018Q1

REPORT INFORMATION
  Report Type: Report from Study
  Country: JP (occurrence: JP)
  Receive Date: 20150305
  Receipt Date: 20180323
  Transmission Date: 20180508
  Serious: Yes (Life-Threatening, Hospitalization, Other)
  Sender: FDA-Public Use
  Company Number: JP-INCYTE CORPORATION-2015IN000774

PATIENT

DRUGS (12)
  1. INDERAL [Concomitant]
     Active Substance: PROPRANOLOL HYDROCHLORIDE
     Indication: PRODUCT USED FOR UNKNOWN INDICATION
     Dosage: UNK
     Route: 065
  2. ZYLORIC [Concomitant]
     Active Substance: ALLOPURINOL
     Indication: PRODUCT USED FOR UNKNOWN INDICATION
     Dosage: UNK
     Route: 065
  3. EXJADE [Concomitant]
     Active Substance: DEFERASIROX
     Indication: PRODUCT USED FOR UNKNOWN INDICATION
     Dosage: 5 MG/KG, UNK
     Route: 048
     Dates: start: 20140605
  4. BLOPRESS [Concomitant]
     Active Substance: CANDESARTAN CILEXETIL
     Indication: PRODUCT USED FOR UNKNOWN INDICATION
     Dosage: UNK
     Route: 065
  5. JAKAVI [Suspect]
     Active Substance: RUXOLITINIB
     Indication: SPLENOMEGALY
  6. PRIMOBOLAN-DEPOT [Concomitant]
     Active Substance: METHENOLONE ENANTHATE
     Indication: PRIMARY MYELOFIBROSIS
     Dosage: 5 MG, TID
     Route: 048
     Dates: start: 20120910
  7. LAC-B [Concomitant]
     Active Substance: BIFIDOBACTERIUM SPP.
     Indication: PRODUCT USED FOR UNKNOWN INDICATION
     Dosage: 1 G, TID
     Route: 065
     Dates: start: 20141119
  8. CALSLOT [Concomitant]
     Active Substance: MANIDIPINE HYDROCHLORIDE
     Indication: PRODUCT USED FOR UNKNOWN INDICATION
     Dosage: UNK
     Route: 065
  9. JAKAVI [Suspect]
     Active Substance: RUXOLITINIB
     Indication: PRIMARY MYELOFIBROSIS
     Dosage: 20 MG, BID
     Route: 048
     Dates: start: 20150205, end: 20150219
  10. REBAMIPIDE [Concomitant]
     Active Substance: REBAMIPIDE
     Indication: PRODUCT USED FOR UNKNOWN INDICATION
     Dosage: 100 MG, TID
     Route: 048
     Dates: start: 20140707
  11. BAYASPIRIN [Concomitant]
     Active Substance: ASPIRIN
     Indication: PRODUCT USED FOR UNKNOWN INDICATION
     Dosage: UNK
     Route: 065
  12. LANSOPRAZOLE. [Concomitant]
     Active Substance: LANSOPRAZOLE
     Indication: PRODUCT USED FOR UNKNOWN INDICATION
     Dosage: 15 MG, QD
     Route: 048
     Dates: start: 20140903

REACTIONS (27)
  - Oedema peripheral [Unknown]
  - Myocarditis infectious [Unknown]
  - Respiratory failure [Unknown]
  - Rhonchi [Unknown]
  - Alanine aminotransferase increased [Unknown]
  - Liver disorder [Unknown]
  - Ejection fraction decreased [Unknown]
  - Rhinorrhoea [Unknown]
  - Pyrexia [Unknown]
  - Dyspnoea [Unknown]
  - Cardiomegaly [Unknown]
  - Influenza [Recovered/Resolved]
  - Rales [Unknown]
  - Pharyngeal erythema [Unknown]
  - Thrombocytosis [Unknown]
  - Wheezing [Unknown]
  - Oropharyngeal pain [Unknown]
  - Pulmonary congestion [Unknown]
  - Tachycardia [Unknown]
  - Blood uric acid increased [Unknown]
  - Aspartate aminotransferase increased [Unknown]
  - Weight decreased [Unknown]
  - Cardiac failure congestive [Recovered/Resolved]
  - Cough [Unknown]
  - Cardiomyopathy [Recovering/Resolving]
  - Inferior vena cava dilatation [Unknown]
  - Product use in unapproved indication [Unknown]

NARRATIVE: CASE EVENT DATE: 201502
